FAERS Safety Report 19950545 (Version 1)
Quarter: 2021Q4

REPORT INFORMATION
  Report Type: Spontaneous
  Country: US (occurrence: US)
  Receive Date: 20211013
  Receipt Date: 20211013
  Transmission Date: 20220303
  Serious: Yes (Hospitalization)
  Sender: FDA-Public Use
  Company Number: US-LUPIN PHARMACEUTICALS INC.-2021-19306

PATIENT
  Age: 1 Decade
  Sex: Female

DRUGS (16)
  1. CETIRIZINE [Suspect]
     Active Substance: CETIRIZINE HYDROCHLORIDE
     Indication: Asthma
     Dosage: 1 DOSAGE FORM, QD
     Route: 048
  2. BUDESONIDE [Suspect]
     Active Substance: BUDESONIDE
     Indication: Asthma
     Dosage: UNK UNK, BID (0.5MG/2ML NEBULIZED)
     Route: 065
  3. ALBUTEROL SULFATE [Suspect]
     Active Substance: ALBUTEROL SULFATE
     Indication: Asthma
     Dosage: UNK, NEBULISED AS NEEDED
  4. XOPENEX [Suspect]
     Active Substance: LEVALBUTEROL HYDROCHLORIDE
     Indication: Asthma
     Dosage: UNK, NEBULISED AS NEEDED
     Route: 065
  5. SINGULAIR [Suspect]
     Active Substance: MONTELUKAST SODIUM
     Indication: Asthma
     Dosage: 4 MILLIGRAM, QD
     Route: 048
  6. SINGULAIR [Suspect]
     Active Substance: MONTELUKAST SODIUM
     Dosage: 1 DOSAGE FORM, CHEWABLE TABLET
     Route: 048
  7. DULERA [Suspect]
     Active Substance: FORMOTEROL FUMARATE DIHYDRATE\MOMETASONE FUROATE
     Indication: Asthma
     Dosage: UNK UNK, BID, 2 PUFFS INHALED TWICE DAILY
  8. DULERA [Suspect]
     Active Substance: FORMOTEROL FUMARATE DIHYDRATE\MOMETASONE FUROATE
     Dosage: BID, UNK, 200-5 MICROG, 2 PUFFS INHALED TWICE DAILY
  9. FORADIL [Suspect]
     Active Substance: FORMOTEROL FUMARATE
     Indication: Asthma
     Dosage: 12 MICROGRAM, NEBULISED
     Route: 065
  10. SYMBICORT [Suspect]
     Active Substance: BUDESONIDE\FORMOTEROL FUMARATE DIHYDRATE
     Indication: Asthma
     Dosage: UNK UNK, BID, UNK160-4.5 MICROG, 2 PUFFS INHALED TWICE DAILY
  11. DYMISTA [Suspect]
     Active Substance: AZELASTINE HYDROCHLORIDE\FLUTICASONE PROPIONATE
     Indication: Asthma
     Dosage: UNK UNK, BID, ADMINISTER 1 SPRAY IN EACH NOSTRIL TWICE DAILY
     Route: 045
  12. COMBIVENT RESPIMAT [Suspect]
     Active Substance: ALBUTEROL SULFATE\IPRATROPIUM BROMIDE
     Indication: Asthma
     Dosage: UNK UNK, PRN,20-100 MICROG/ACTUATION; INHALE 1-2 PUFFS EVERY 6 HOURS AS NEEDED
     Route: 065
  13. VISTARIL [Suspect]
     Active Substance: HYDROXYZINE PAMOATE
     Indication: Asthma
     Dosage: UNK UNK, BID, 2 MG/ML SOLUTION, 7.5ML (15MG) AT BEDTIME AS NEEDED
     Route: 048
  14. NUCALA [Concomitant]
     Active Substance: MEPOLIZUMAB
     Indication: Asthma
     Dosage: 100 MILLIGRAM
     Route: 058
  15. XOLAIR [Concomitant]
     Active Substance: OMALIZUMAB
     Indication: Asthma
     Dosage: 300 MILLIGRAM
     Route: 058
  16. ZANTAC [Concomitant]
     Active Substance: RANITIDINE HYDROCHLORIDE
     Indication: Gastrooesophageal reflux disease
     Dosage: 75 MILLIGRAM
     Route: 048

REACTIONS (1)
  - Drug ineffective [Unknown]
